FAERS Safety Report 18285104 (Version 1)
Quarter: 2020Q3

REPORT INFORMATION
  Report Type: Spontaneous
  Country: US (occurrence: US)
  Receive Date: 20200918
  Receipt Date: 20200918
  Transmission Date: 20201103
  Serious: No
  Sender: FDA-Public Use
  Company Number: US-PFIZER INC-2020357977

PATIENT
  Age: 61 Year
  Sex: Female

DRUGS (1)
  1. IBRANCE [Suspect]
     Active Substance: PALBOCICLIB
     Dosage: 100 MG, CYCLIC (100 MG QD (ONCE A DAY) 21 DAYS Q (EVERY) 28 DAYS)
     Dates: start: 20200826

REACTIONS (6)
  - Hypoaesthesia [Unknown]
  - Constipation [Unknown]
  - Alopecia [Unknown]
  - Pyrexia [Unknown]
  - Oral pain [Unknown]
  - Diarrhoea [Unknown]
